FAERS Safety Report 24071342 (Version 1)
Quarter: 2024Q3

REPORT INFORMATION
  Report Type: Spontaneous
  Country: SK (occurrence: SK)
  Receive Date: 20240710
  Receipt Date: 20240710
  Transmission Date: 20241016
  Serious: No
  Sender: ROCHE
  Company Number: SK-ROCHE-3523512

PATIENT
  Sex: Male
  Weight: 13.0 kg

DRUGS (1)
  1. EVRYSDI [Suspect]
     Active Substance: RISDIPLAM
     Indication: Spinal muscular atrophy
     Dosage: DOSE: 3.12 MG/DAY
     Route: 065
     Dates: start: 202311

REACTIONS (1)
  - Weight increased [Unknown]
